FAERS Safety Report 4900949-7 (Version None)
Quarter: 2006Q1

REPORT INFORMATION
  Report Type: 
  Country: None (occurrence: None)
  Receive Date: 20060203
  Receipt Date: 20050818
  Transmission Date: 20060701
  Serious: Yes (Death, Hospitalization)
  Sender: FDA-Public Use
  Company Number: US-MERCK-0508USA03301

PATIENT
  Age: 77 Year
  Sex: Female

DRUGS (6)
  1. VIOXX [Suspect]
     Indication: ARTHRITIS
     Route: 048
  2. NEXIUM [Concomitant]
     Indication: GASTROOESOPHAGEAL REFLUX DISEASE
     Route: 048
  3. HYDROCHLOROTHIAZIDE AND TRIAMTERENE [Concomitant]
     Indication: HYPERTENSION
     Route: 048
  4. VERAPAMIL [Concomitant]
     Indication: HYPERTENSION
     Route: 048
  5. ZOCOR [Concomitant]
     Indication: HYPERLIPIDAEMIA
     Route: 048
  6. ASPIRIN [Concomitant]
     Route: 048

REACTIONS (3)
  - BRAIN OEDEMA [None]
  - CARDIO-RESPIRATORY ARREST [None]
  - CEREBROVASCULAR ACCIDENT [None]
